FAERS Safety Report 15132923 (Version 1)
Quarter: 2018Q3

REPORT INFORMATION
  Report Type: Spontaneous
  Country: US (occurrence: US)
  Receive Date: 20180712
  Receipt Date: 20180712
  Transmission Date: 20181010
  Serious: No
  Sender: FDA-Public Use
  Company Number: US-009507513-1807USA000293

PATIENT
  Sex: Female

DRUGS (2)
  1. FOSAMAX [Suspect]
     Active Substance: ALENDRONATE SODIUM
     Indication: PRODUCT USED FOR UNKNOWN INDICATION
     Dosage: UNK
  2. ORENITRAM [Suspect]
     Active Substance: TREPROSTINIL
     Indication: PULMONARY ARTERIAL HYPERTENSION
     Dosage: 20 MG, TID
     Route: 048
     Dates: start: 20151125

REACTIONS (4)
  - Neck pain [Unknown]
  - Flatulence [Unknown]
  - Pain in extremity [Unknown]
  - Diarrhoea [Unknown]

NARRATIVE: CASE EVENT DATE: 2018
